FAERS Safety Report 14017232 (Version 1)
Quarter: 2017Q3

REPORT INFORMATION
  Report Type: Spontaneous
  Country: US (occurrence: US)
  Receive Date: 20170927
  Receipt Date: 20170927
  Transmission Date: 20171128
  Serious: Yes (Life-Threatening, Hospitalization, Other)
  Sender: FDA-Public Use
  Company Number: US-MYLANLABS-2017M1059792

PATIENT
  Sex: Male

DRUGS (2)
  1. METHIMAZOLE. [Suspect]
     Active Substance: METHIMAZOLE
     Indication: HYPERTHYROIDISM
     Dosage: THEN THE DOSE WAS TITRATED
     Route: 065
  2. METHIMAZOLE. [Suspect]
     Active Substance: METHIMAZOLE
     Dosage: 30 MG, TID
     Route: 065

REACTIONS (3)
  - Agranulocytosis [Recovering/Resolving]
  - Febrile neutropenia [Unknown]
  - Oral candidiasis [Unknown]
